FAERS Safety Report 9166910 (Version 1)
Quarter: 2013Q1

REPORT INFORMATION
  Report Type: Spontaneous
  Country: IE (occurrence: IE)
  Receive Date: 20130318
  Receipt Date: 20130318
  Transmission Date: 20140127
  Serious: Yes (Other)
  Sender: FDA-Public Use
  Company Number: PHHY2013IE019674

PATIENT
  Age: 40 Year
  Sex: Female

DRUGS (2)
  1. BISOPROLOL FUMARATE [Suspect]
     Indication: BLOOD PRESSURE ABNORMAL
     Dosage: 1.25 MG
     Route: 048
     Dates: start: 20130214, end: 20130222
  2. BISOPROLOL FUMARATE [Suspect]
     Indication: CARDIAC DISORDER

REACTIONS (4)
  - Ear discomfort [Recovered/Resolved]
  - Hot flush [Recovered/Resolved]
  - Nausea [Recovered/Resolved]
  - Headache [Recovered/Resolved]
